FAERS Safety Report 24531619 (Version 1)
Quarter: 2024Q4

REPORT INFORMATION
  Report Type: Report from Study
  Country: US (occurrence: US)
  Receive Date: 20241022
  Receipt Date: 20241022
  Transmission Date: 20250115
  Serious: No
  Sender: ROCHE
  Company Number: US-ROCHE-3448413

PATIENT
  Age: 34 Year
  Sex: Female

DRUGS (4)
  1. PULMOZYME [Suspect]
     Active Substance: DORNASE ALFA
     Indication: Pleural effusion
     Dosage: 4MG, PRN
     Route: 065
  2. PULMOZYME [Suspect]
     Active Substance: DORNASE ALFA
     Indication: Thrombosis in device
  3. PULMOZYME [Suspect]
     Active Substance: DORNASE ALFA
     Indication: Infectious pleural effusion
  4. CATHFLO ACTIVASE [Suspect]
     Active Substance: ALTEPLASE
     Indication: Pleural effusion
     Dosage: 2MG, PRN
     Route: 065

REACTIONS (2)
  - Off label use [Unknown]
  - No adverse event [Unknown]
